FAERS Safety Report 5490452-0 (Version None)
Quarter: 2007Q4

REPORT INFORMATION
  Report Type: 
  Country: None (occurrence: None)
  Receive Date: 20071017
  Receipt Date: 20071017
  Transmission Date: 20080405
  Serious: Yes (Hospitalization)
  Sender: FDA-Public Use
  Company Number: None

PATIENT
  Sex: Female
  Weight: 44.5 kg

DRUGS (14)
  1. CETUXIMAB [Suspect]
     Indication: BREAST CANCER
     Dosage: 250MG/M2 Q1 WEEK IV
     Route: 042
     Dates: start: 20070904, end: 20070925
  2. CARBOPLATIN [Suspect]
     Indication: BREAST CANCER
     Dosage: AUC2 WKS 1,2,3 QCYCLE IV
     Route: 042
     Dates: start: 20070904, end: 20070918
  3. CLINDAMYCIN HCL [Concomitant]
  4. COMPAZINE [Concomitant]
  5. DILAUDID [Concomitant]
  6. DURAGESIC-100 [Concomitant]
  7. LIDODERM [Concomitant]
  8. LORAZEPAM [Concomitant]
  9. MEGACE [Concomitant]
  10. NASACORT AQ [Concomitant]
  11. PROBIOTICS [Concomitant]
  12. SLOW-MAG (MAGNESIUM CHLORIDE HEXAHYDRATE) [Concomitant]
  13. ZOFRAN [Concomitant]
  14. LACTULOSE [Concomitant]

REACTIONS (1)
  - METASTASES TO CHEST WALL [None]
